FAERS Safety Report 5336958-6 (Version None)
Quarter: 2007Q2

REPORT INFORMATION
  Report Type: 
  Country: None (occurrence: None)
  Receive Date: 20070529
  Receipt Date: 20070518
  Transmission Date: 20071010
  Serious: Yes (Hospitalization, Other)
  Sender: FDA-Public Use
  Company Number: US-ELI_LILLY_AND_COMPANY-US200609001167

PATIENT
  Age: 42 Year
  Sex: Female
  Weight: 102.04 kg

DRUGS (6)
  1. ZYPREXA [Suspect]
     Indication: SCHIZOPHRENIA
     Dosage: 20 MG, EACH EVENING
     Route: 065
     Dates: start: 19970101, end: 20020701
  2. ZYPREXA [Suspect]
     Dosage: 10 MG, EACH EVENING
     Route: 065
  3. SEROQUEL [Concomitant]
     Dosage: UNK, UNKNOWN
     Route: 065
     Dates: start: 20020701, end: 20030513
  4. SEROQUEL [Concomitant]
     Dosage: 300 MG, EACH EVENING
     Route: 065
     Dates: start: 20030514, end: 20060518
  5. SEROQUEL [Concomitant]
     Dosage: 100 MG, EACH EVENING
     Route: 065
     Dates: start: 20060519
  6. LISINOPRIL [Concomitant]
     Dosage: 10 MG, UNKNOWN
     Route: 065
     Dates: start: 20051227

REACTIONS (10)
  - BLOOD ALKALINE PHOSPHATASE INCREASED [None]
  - CATARACT [None]
  - DIABETES MELLITUS [None]
  - DIABETIC COMA [None]
  - GASTRIC BYPASS [None]
  - HYPERTENSION [None]
  - LYMPHOCYTE COUNT INCREASED [None]
  - OBESITY [None]
  - WEIGHT INCREASED [None]
  - WHITE BLOOD CELL COUNT INCREASED [None]
